FAERS Safety Report 9770672 (Version 2)
Quarter: 2014Q1

REPORT INFORMATION
  Report Type: Report from Study
  Country: JP (occurrence: JP)
  Receive Date: 20131218
  Receipt Date: 20140204
  Transmission Date: 20141002
  Serious: Yes (Hospitalization, Disabling)
  Sender: FDA-Public Use
  Company Number: JP-GLAXOSMITHKLINE-B0904614A

PATIENT
  Age: 79 Year
  Sex: Female
  Weight: 36 kg

DRUGS (7)
  1. VOTRIENT 200MG [Suspect]
     Indication: SPINDLE CELL SARCOMA
     Dosage: 400MG PER DAY
     Route: 048
     Dates: start: 20130606, end: 20130902
  2. AMLODIPINE [Concomitant]
     Route: 048
  3. PREDONINE [Concomitant]
     Indication: SPINDLE CELL SARCOMA
     Route: 065
  4. FAMOTIDINE [Concomitant]
     Route: 065
  5. KETAS [Concomitant]
     Route: 048
  6. MYSLEE [Concomitant]
     Route: 048
  7. RIVOTRIL [Concomitant]
     Route: 048

REACTIONS (3)
  - Malaise [Not Recovered/Not Resolved]
  - Dysgeusia [Not Recovered/Not Resolved]
  - Decreased appetite [Not Recovered/Not Resolved]
